FAERS Safety Report 21023445 (Version 2)
Quarter: 2022Q3

REPORT INFORMATION
  Report Type: Spontaneous
  Country: US (occurrence: US)
  Receive Date: 20220629
  Receipt Date: 20220708
  Transmission Date: 20221026
  Serious: No
  Sender: FDA-Public Use
  Company Number: US-SANOFI-01163732

PATIENT
  Sex: Female

DRUGS (1)
  1. NASACORT ALLERGY 24HR [Suspect]
     Active Substance: TRIAMCINOLONE ACETONIDE
     Indication: Product used for unknown indication
     Dosage: UNK
     Route: 065
     Dates: start: 2022

REACTIONS (5)
  - Lacrimation increased [Unknown]
  - Eye pain [Unknown]
  - Eye discharge [Unknown]
  - Eye swelling [Unknown]
  - Visual impairment [Unknown]

NARRATIVE: CASE EVENT DATE: 20220101
